FAERS Safety Report 22927766 (Version 3)
Quarter: 2023Q4

REPORT INFORMATION
  Report Type: Spontaneous
  Country: US (occurrence: US)
  Receive Date: 20230911
  Receipt Date: 20231013
  Transmission Date: 20240110
  Serious: No
  Sender: FDA-Public Use
  Company Number: US-GSKCCFUS-Case-01796789_AE-100713

PATIENT
  Age: 33 Year
  Sex: Female

DRUGS (1)
  1. ALBUTEROL [Suspect]
     Active Substance: ALBUTEROL
     Indication: Asthma
     Dosage: UNK, ONCE A WEEK TO EVERY 2 WEEKS,90 MCG, 18G/200 METERED
     Route: 055

REACTIONS (3)
  - Asthma [Recovered/Resolved]
  - Incorrect dose administered by device [Unknown]
  - Product complaint [Unknown]

NARRATIVE: CASE EVENT DATE: 20230902
